FAERS Safety Report 6417801-0 (Version None)
Quarter: 2009Q4

REPORT INFORMATION
  Report Type: 
  Country: None (occurrence: None)
  Receive Date: 20091027
  Receipt Date: 20091027
  Transmission Date: 20100525
  Serious: No
  Sender: FDA-Public Use
  Company Number: None

PATIENT
  Age: 32 Year
  Sex: Male
  Weight: 105 kg

DRUGS (2)
  1. VANCOMYCIN [Suspect]
     Dosage: 1.25G IV Q12H
  2. HEPARIN [Concomitant]

REACTIONS (2)
  - ENDOCARDITIS [None]
  - PLATELET COUNT DECREASED [None]
